FAERS Safety Report 19681604 (Version 1)
Quarter: 2021Q3

REPORT INFORMATION
  Report Type: Spontaneous
  Country: GB (occurrence: GB)
  Receive Date: 20210810
  Receipt Date: 20210810
  Transmission Date: 20211014
  Serious: Yes (Other)
  Sender: FDA-Public Use
  Company Number: GB-ELI_LILLY_AND_COMPANY-GB202107012482

PATIENT
  Sex: Female

DRUGS (4)
  1. SINEMET [Concomitant]
     Active Substance: CARBIDOPA\LEVODOPA
     Dosage: UNK, UNKNOWN
  2. VITAMIN B3 [Concomitant]
     Active Substance: NIACIN
     Dosage: UNK, UNKNOWN
  3. HUMALOG MIX50/50 [Suspect]
     Active Substance: INSULIN LISPRO
     Indication: PRODUCT USED FOR UNKNOWN INDICATION
     Dosage: UNK, UNKNOWN
     Route: 065
  4. FRUSEMIDE [FUROSEMIDE] [Concomitant]
     Active Substance: FUROSEMIDE
     Dosage: UNK, UNKNOWN

REACTIONS (2)
  - Parkinson^s disease [Unknown]
  - Arthritis [Unknown]
